FAERS Safety Report 8029943-7 (Version None)
Quarter: 2012Q1

REPORT INFORMATION
  Report Type: 
  Country: None (occurrence: None)
  Receive Date: 20120109
  Receipt Date: 20111230
  Transmission Date: 20120608
  Serious: Yes (Hospitalization)
  Sender: FDA-Public Use
  Company Number: FR-PFIZER INC-FR-WYE-H16832210

PATIENT
  Age: 66 Year
  Sex: Female

DRUGS (10)
  1. ESCITALOPRAM OXALATE [Concomitant]
  2. SINGULAIR [Concomitant]
  3. PLAVIX [Concomitant]
  4. OMACOR [Concomitant]
  5. POTASSIUM CHLORIDE [Concomitant]
  6. PANTOPRAZOLE SODIUM [Suspect]
     Dosage: 1 DF, 1X/DAY
     Route: 048
     Dates: end: 20100421
  7. ALLOPURINOL [Suspect]
     Indication: GOUT
     Dosage: UNK
     Route: 048
     Dates: start: 20100227, end: 20100414
  8. OFLOXACIN [Suspect]
     Indication: LUNG DISORDER
     Dosage: 200.0 MG, 2X/DAY
     Route: 048
     Dates: start: 20100407, end: 20100414
  9. LASIX [Concomitant]
  10. PRAVASTATIN [Concomitant]

REACTIONS (3)
  - MYOCARDIAL INFARCTION [None]
  - AGRANULOCYTOSIS [None]
  - ANAEMIA [None]
